FAERS Safety Report 23281314 (Version 1)
Quarter: 2023Q4

REPORT INFORMATION
  Report Type: Spontaneous
  Country: US (occurrence: US)
  Receive Date: 20231211
  Receipt Date: 20231211
  Transmission Date: 20240109
  Serious: Yes (Other)
  Sender: FDA-Public Use
  Company Number: US-MSNLABS-2023MSNSPO02182

PATIENT

DRUGS (1)
  1. PACLITAXEL [Suspect]
     Active Substance: PACLITAXEL
     Indication: Product used for unknown indication
     Dosage: 3 CYCLES OF PACLITAXEL INFUSION AT A DOSE OF 112 MG IN 60 MINS
     Route: 042

REACTIONS (5)
  - Unresponsive to stimuli [Unknown]
  - Dyskinesia [Unknown]
  - Eye movement disorder [Unknown]
  - Flushing [Unknown]
  - Erythema [Unknown]

NARRATIVE: CASE EVENT DATE: 20231004
